FAERS Safety Report 11226292 (Version 1)
Quarter: 2015Q2

REPORT INFORMATION
  Report Type: Report from Study
  Country: US (occurrence: US)
  Receive Date: 20150629
  Receipt Date: 20150629
  Transmission Date: 20150821
  Serious: Yes (Other)
  Sender: FDA-Public Use
  Company Number: US-BAXALTA-2015BAX033050

PATIENT
  Age: 32 Year
  Sex: Female

DRUGS (2)
  1. HUMAN NORMAL IMMUNOGLOBULIN; LIQUID [Suspect]
     Active Substance: HUMAN IMMUNOGLOBULIN G
     Indication: PRIMARY IMMUNODEFICIENCY SYNDROME
     Dosage: UNK
     Route: 042
     Dates: start: 201503, end: 201503
  2. HUMAN NORMAL IMMUNOGLOBULIN; LIQUID [Suspect]
     Active Substance: HUMAN IMMUNOGLOBULIN G
     Indication: IMMUNODEFICIENCY COMMON VARIABLE
     Dosage: RATE SLOWED DURING ADMINISTRATION, ONLY RECEIVED 2 OF THE 4 VIALS
     Route: 042
     Dates: start: 201505, end: 201505

REACTIONS (6)
  - Kidney infection [Unknown]
  - Drug intolerance [Unknown]
  - Gastroenteritis viral [Unknown]
  - Urinary tract infection [Unknown]
  - Adverse reaction [Unknown]
  - Breast mass [Unknown]

NARRATIVE: CASE EVENT DATE: 201503
